FAERS Safety Report 14010176 (Version 3)
Quarter: 2017Q4

REPORT INFORMATION
  Report Type: Report from Study
  Country: DE (occurrence: DE)
  Receive Date: 20170926
  Receipt Date: 20171121
  Transmission Date: 20180321
  Serious: Yes (Hospitalization)
  Sender: FDA-Public Use
  Company Number: DE-AMGEN-DEUCT2017142337

PATIENT
  Age: 28 Year
  Sex: Male

DRUGS (2)
  1. CALCILAC [Concomitant]
     Active Substance: CALCIUM CARBONATE
     Dosage: 880 UNK, BID
     Route: 048
     Dates: start: 20050714
  2. DENOSUMAB [Suspect]
     Active Substance: DENOSUMAB
     Indication: BONE GIANT CELL TUMOUR
     Dosage: 120 MG, QMO
     Route: 058
     Dates: start: 20090714

REACTIONS (1)
  - Atypical femur fracture [Recovered/Resolved]

NARRATIVE: CASE EVENT DATE: 20170115
